FAERS Safety Report 8525837-9 (Version None)
Quarter: 2012Q3

REPORT INFORMATION
  Report Type: 
  Country: None (occurrence: None)
  Receive Date: 20120720
  Receipt Date: 20120709
  Transmission Date: 20120928
  Serious: Yes (Other)
  Sender: FDA-Public Use
  Company Number: US-ELI_LILLY_AND_COMPANY-US201207002874

PATIENT
  Sex: Male
  Weight: 116.55 kg

DRUGS (3)
  1. BYETTA [Suspect]
     Indication: TYPE 2 DIABETES MELLITUS
     Route: 058
  2. VICTOZA [Concomitant]
     Indication: TYPE 2 DIABETES MELLITUS
     Dosage: UNK
  3. INSULIN [Concomitant]
     Indication: TYPE 2 DIABETES MELLITUS
     Dosage: 1 DF, BID

REACTIONS (6)
  - DISCOMFORT [None]
  - UMBILICAL HERNIA [None]
  - VOMITING [None]
  - WOUND [None]
  - WEIGHT DECREASED [None]
  - DIABETIC COMPLICATION [None]
